FAERS Safety Report 13657343 (Version 5)
Quarter: 2017Q3

REPORT INFORMATION
  Report Type: Spontaneous
  Country: US (occurrence: US)
  Receive Date: 20170615
  Receipt Date: 20170925
  Transmission Date: 20171127
  Serious: Yes (Other)
  Sender: FDA-Public Use
  Company Number: US-PFIZER INC-2017250561

PATIENT
  Age: 61 Year
  Sex: Male

DRUGS (3)
  1. SODIUM CHLORIDE. [Suspect]
     Active Substance: SODIUM CHLORIDE
     Dosage: UNK UNK, 2X/WEEK
     Route: 042
  2. HEPARIN SODIUM. [Suspect]
     Active Substance: HEPARIN SODIUM
     Dosage: UNK UNK, 2X/WEEK
     Route: 042
  3. SODIUM CHLORIDE. [Suspect]
     Active Substance: SODIUM CHLORIDE
     Dosage: UNK, 2X/WEEK
     Route: 042

REACTIONS (7)
  - Nausea [Recovered/Resolved]
  - Product quality issue [Unknown]
  - Muscle spasms [Unknown]
  - Pyrexia [Recovered/Resolved]
  - Influenza like illness [Unknown]
  - Chills [Recovered/Resolved]
  - Pain [Recovered/Resolved]
